FAERS Safety Report 22202480 (Version 1)
Quarter: 2023Q2

REPORT INFORMATION
  Report Type: Spontaneous
  Country: JP (occurrence: JP)
  Receive Date: 20230412
  Receipt Date: 20230412
  Transmission Date: 20230721
  Serious: Yes (Hospitalization)
  Sender: FDA-Public Use
  Company Number: JP-JNJFOC-20230424390

PATIENT
  Age: 77 Year
  Sex: Male

DRUGS (2)
  1. INVEGA [Suspect]
     Active Substance: PALIPERIDONE
     Indication: Schizophrenia
     Dosage: IN THE MORNING
     Route: 048
  2. INVEGA [Suspect]
     Active Substance: PALIPERIDONE
     Dosage: DOSE UNKNOWN
     Route: 050

REACTIONS (2)
  - Hospitalisation [Unknown]
  - Off label use [Unknown]
